FAERS Safety Report 14511958 (Version 2)
Quarter: 2018Q1

REPORT INFORMATION
  Report Type: Spontaneous
  Country: IT (occurrence: IT)
  Receive Date: 20180209
  Receipt Date: 20180212
  Transmission Date: 20180509
  Serious: Yes (Other)
  Sender: FDA-Public Use
  Company Number: IT-PFIZER INC-2017082866

PATIENT
  Age: 55 Year
  Sex: Female

DRUGS (2)
  1. XANAX [Suspect]
     Active Substance: ALPRAZOLAM
     Dosage: UNK
     Route: 048
  2. DAPAROX [Suspect]
     Active Substance: PAROXETINE HYDROCHLORIDE
     Route: 048

REACTIONS (4)
  - Anxiety [Unknown]
  - Fall [Unknown]
  - Posture abnormal [Unknown]
  - Balance disorder [Unknown]

NARRATIVE: CASE EVENT DATE: 20160906
